FAERS Safety Report 12811250 (Version 2)
Quarter: 2016Q4

REPORT INFORMATION
  Report Type: Spontaneous
  Country: US (occurrence: US)
  Receive Date: 20161005
  Receipt Date: 20161111
  Transmission Date: 20170207
  Serious: Yes (Other)
  Sender: FDA-Public Use
  Company Number: PHEH2016US025513

PATIENT
  Age: 48 Year
  Sex: Female
  Weight: 201.6 kg

DRUGS (1)
  1. COSENTYX [Suspect]
     Active Substance: SECUKINUMAB
     Indication: PSORIATIC ARTHROPATHY
     Dosage: 2 DF, QMO
     Route: 058
     Dates: start: 20160815, end: 20161005

REACTIONS (8)
  - Injection site haemorrhage [Unknown]
  - Accidental exposure to product [Unknown]
  - Pyrexia [Unknown]
  - Incorrect dose administered [Unknown]
  - Paranasal sinus hypersecretion [Unknown]
  - Device malfunction [Unknown]
  - Sinusitis [Unknown]
  - Injection site pain [Unknown]

NARRATIVE: CASE EVENT DATE: 20161005
